FAERS Safety Report 12241341 (Version 1)
Quarter: 2016Q2

REPORT INFORMATION
  Report Type: Spontaneous
  Country: US (occurrence: None)
  Receive Date: 20160405
  Receipt Date: 20160405
  Transmission Date: 20160815
  Serious: No
  Sender: FDA-Public Use
  Company Number: None

PATIENT
  Age: 55 Year
  Sex: Female
  Weight: 56.7 kg

DRUGS (8)
  1. CALCIUM [Concomitant]
     Active Substance: CALCIUM
  2. BLACK CURRANT OIL [Concomitant]
  3. NORDIC NATURALS ULTIMTE OMEGA D3 [Concomitant]
  4. RISEDRONATE SODIUM 150MG, 150MG ACTAVIS [Suspect]
     Active Substance: RISEDRONATE SODIUM
     Indication: OSTEOPENIA
     Route: 048
     Dates: start: 20160301
  5. ACTONEL [Concomitant]
     Active Substance: RISEDRONATE SODIUM
  6. BIOTIN [Concomitant]
     Active Substance: BIOTIN
  7. SCHIFF MOVE FREE [Concomitant]
     Active Substance: CHONDROITIN SULFATE A\GLUCOSAMINE
  8. CENTRUM SILVER [Concomitant]
     Active Substance: MINERALS\VITAMINS

REACTIONS (9)
  - Arthralgia [None]
  - Tremor [None]
  - Chills [None]
  - Influenza [None]
  - Insomnia [None]
  - Nausea [None]
  - Pain [None]
  - Pyrexia [None]
  - Diarrhoea [None]

NARRATIVE: CASE EVENT DATE: 20160301
